FAERS Safety Report 6279896-7 (Version None)
Quarter: 2009Q3

REPORT INFORMATION
  Report Type: 
  Country: None (occurrence: None)
  Receive Date: 20090723
  Receipt Date: 20090716
  Transmission Date: 20100115
  Serious: Yes (Other)
  Sender: FDA-Public Use
  Company Number: PHHY2008CA25639

PATIENT
  Sex: Female

DRUGS (5)
  1. SANDOSTATIN LAR [Suspect]
     Indication: GASTRIC MUCOSAL HYPERTROPHY
     Dosage: 10 MG, QMO
     Route: 030
     Dates: start: 20080729
  2. ACTONEL [Concomitant]
     Indication: OSTEOPOROSIS
     Dosage: 35 MG, QW
  3. NORVASC [Concomitant]
     Dosage: 1.5 TABS, 7.5 MG DAILY
     Dates: start: 20090506
  4. NORVASC [Concomitant]
     Dosage: 1.5 DF DAILY
  5. VITAMIN D [Concomitant]
     Dosage: UNK

REACTIONS (6)
  - AORTIC ANEURYSM [None]
  - BONE DISORDER [None]
  - DIARRHOEA [None]
  - GASTROINTESTINAL DISORDER [None]
  - OSTEOPOROSIS [None]
  - VOMITING [None]
